FAERS Safety Report 20933294 (Version 1)
Quarter: 2022Q2

REPORT INFORMATION
  Report Type: Spontaneous
  Country: FI (occurrence: FI)
  Receive Date: 20220608
  Receipt Date: 20220608
  Transmission Date: 20220721
  Serious: Yes (Hospitalization)
  Sender: FDA-Public Use
  Company Number: None

PATIENT
  Age: 16 Year
  Sex: Male

DRUGS (3)
  1. MESALAMINE [Suspect]
     Active Substance: MESALAMINE
     Indication: Colitis ulcerative
     Dosage: 3200 MILLIGRAM, QD
     Route: 048
     Dates: start: 20220412, end: 20220503
  2. PREDNISOLONE [Concomitant]
     Active Substance: PREDNISOLONE
     Indication: Colitis ulcerative
     Dosage: 35 MILLIGRAM, QD
     Route: 048
     Dates: start: 20220412
  3. NEOPROCT [Concomitant]
     Indication: Haemorrhoids
     Dosage: UNK
     Route: 054
     Dates: start: 20211220

REACTIONS (1)
  - Myocarditis [Recovering/Resolving]

NARRATIVE: CASE EVENT DATE: 20220430
